FAERS Safety Report 23201058 (Version 1)
Quarter: 2023Q4

REPORT INFORMATION
  Report Type: Report from Study
  Country: US (occurrence: US)
  Receive Date: 20231118
  Receipt Date: 20231118
  Transmission Date: 20240110
  Serious: Yes (Other)
  Sender: FDA-Public Use
  Company Number: US-AstraZeneca-CH-00506722A

PATIENT
  Sex: Female

DRUGS (1)
  1. ULTOMIRIS [Suspect]
     Active Substance: RAVULIZUMAB-CWVZ
     Indication: Product used for unknown indication
     Dosage: UNK
     Route: 065

REACTIONS (7)
  - Neuropathy peripheral [Not Recovered/Not Resolved]
  - Dysphonia [Unknown]
  - Paraesthesia [Not Recovered/Not Resolved]
  - Limb discomfort [Unknown]
  - Eyelid ptosis [Unknown]
  - Muscle spasms [Unknown]
  - Fatigue [Unknown]
